FAERS Safety Report 9096139 (Version 1)
Quarter: 2013Q1

REPORT INFORMATION
  Report Type: Spontaneous
  Country: US (occurrence: US)
  Receive Date: 20130207
  Receipt Date: 20130207
  Transmission Date: 20140127
  Serious: No
  Sender: FDA-Public Use
  Company Number: US-ASTRAZENECA-2013SE07853

PATIENT
  Age: 35 Year
  Sex: Male

DRUGS (2)
  1. SEROQUEL [Suspect]
     Route: 048
     Dates: start: 2009
  2. SEROQUEL [Suspect]
     Route: 048

REACTIONS (7)
  - Malaise [Not Recovered/Not Resolved]
  - Adverse event [Not Recovered/Not Resolved]
  - Depression [Unknown]
  - Somnolence [Unknown]
  - Drug withdrawal syndrome [Unknown]
  - Incorrect storage of drug [Unknown]
  - Drug dose omission [Unknown]
